FAERS Safety Report 24330486 (Version 1)
Quarter: 2024Q3

REPORT INFORMATION
  Report Type: Spontaneous
  Country: US (occurrence: None)
  Receive Date: 20240918
  Receipt Date: 20240918
  Transmission Date: 20241017
  Serious: No
  Sender: ASTRAZENECA
  Company Number: 2024A201990

PATIENT
  Sex: Male

DRUGS (3)
  1. CRESTOR [Suspect]
     Active Substance: ROSUVASTATIN CALCIUM
     Route: 048
  2. ROSUVASTATIN [Suspect]
     Active Substance: ROSUVASTATIN\ROSUVASTATIN CALCIUM
     Route: 048
  3. CRESTOR [Suspect]
     Active Substance: ROSUVASTATIN CALCIUM
     Route: 048

REACTIONS (4)
  - Arthralgia [Unknown]
  - Nerve compression [Unknown]
  - Pain in extremity [Unknown]
  - Intervertebral disc protrusion [Unknown]
